FAERS Safety Report 8828768 (Version 5)
Quarter: 2015Q3

REPORT INFORMATION
  Report Type: Spontaneous
  Country: US (occurrence: US)
  Receive Date: 20121008
  Receipt Date: 20150831
  Transmission Date: 20151125
  Serious: Yes (Other)
  Sender: FDA-Public Use
  Company Number: US-BAYER-2012-102465

PATIENT
  Age: 16 Year
  Sex: Female
  Weight: 57.14 kg

DRUGS (1)
  1. MIDOL COMPLETE [Suspect]
     Active Substance: ACETAMINOPHEN\CAFFEINE\PYRILAMINE MALEATE
     Dosage: 1 DF, PRN
     Route: 048
     Dates: start: 20120627

REACTIONS (20)
  - Vision blurred [Recovered/Resolved]
  - Sinusitis [None]
  - Pyrexia [None]
  - Sinusitis [Unknown]
  - Malaise [None]
  - Oropharyngeal pain [None]
  - Upper respiratory tract infection [None]
  - Abdominal discomfort [Recovered/Resolved]
  - Chest pain [Recovered/Resolved]
  - Sinus headache [Unknown]
  - Cough [None]
  - Tinea infection [Unknown]
  - Diarrhoea [Recovered/Resolved]
  - Rhinitis allergic [Unknown]
  - Headache [None]
  - Respiratory tract congestion [None]
  - Expired product administered [None]
  - Lacrimation increased [None]
  - Head discomfort [Unknown]
  - Peripheral swelling [Not Recovered/Not Resolved]

NARRATIVE: CASE EVENT DATE: 201206
